FAERS Safety Report 17563429 (Version 3)
Quarter: 2024Q1

REPORT INFORMATION
  Report Type: Spontaneous
  Country: US (occurrence: US)
  Receive Date: 20200319
  Receipt Date: 20240110
  Transmission Date: 20240410
  Serious: No
  Sender: FDA-Public Use
  Company Number: US-CATALYST PHARMACEUTICALS, INC-2020CAT00074

PATIENT
  Sex: Male
  Weight: 108.84 kg

DRUGS (12)
  1. FIRDAPSE [Suspect]
     Active Substance: AMIFAMPRIDINE PHOSPHATE
     Indication: Myasthenic syndrome
     Dosage: 40 MG DAILY (TAKEN AS 10 MG, 4 TIMES PER DAY)
     Route: 048
     Dates: start: 20200105, end: 20200107
  2. FIRDAPSE [Suspect]
     Active Substance: AMIFAMPRIDINE PHOSPHATE
     Dosage: 45 MG DAILY (TAKEN AS 15MG ONCE DAILY AND 10MG 3 TIMES DAILY)
     Route: 048
     Dates: start: 20200108, end: 20200110
  3. FIRDAPSE [Suspect]
     Active Substance: AMIFAMPRIDINE PHOSPHATE
     Dosage: 50 MG DAILY (TAKEN AS 15 MG TWICE DAILY AND 10 MG TWICE DAILY)
     Route: 048
     Dates: start: 20200111, end: 20200113
  4. FIRDAPSE [Suspect]
     Active Substance: AMIFAMPRIDINE PHOSPHATE
     Dosage: 55 MG DAILY (TAKEN AS 15 MG THREE TIMES DAILY AND 10 MG ONCE DAILY)
     Route: 048
     Dates: start: 20200114, end: 20200116
  5. FIRDAPSE [Suspect]
     Active Substance: AMIFAMPRIDINE PHOSPHATE
     Dosage: 60 MG DAILY (TAKEN AS 20 MG THREE TIMES DAILY)
     Route: 048
     Dates: start: 20200117
  6. METHOTREXATE [Concomitant]
     Active Substance: METHOTREXATE
     Indication: Product used for unknown indication
     Dosage: 0.8 ML,1X/DAY
     Route: 065
  7. PREDNISONE [Concomitant]
     Active Substance: PREDNISONE
     Indication: Product used for unknown indication
     Dosage: 10 MG, 1X/DAY
     Route: 065
  8. FOLIC ACID [Concomitant]
     Active Substance: FOLIC ACID
     Indication: Product used for unknown indication
     Dosage: 2 MG, UNK
     Route: 065
  9. LISINOPRIL [Concomitant]
     Active Substance: LISINOPRIL
     Indication: Product used for unknown indication
     Dosage: 20 MG, 1X/DAY
     Route: 065
  10. ATORVASTATIN [Concomitant]
     Active Substance: ATORVASTATIN
     Indication: Product used for unknown indication
     Dosage: 40 MG, 1X/DAY
     Route: 065
  11. TESTOSTERONE CYPIONATE [Concomitant]
     Active Substance: TESTOSTERONE CYPIONATE
     Indication: Product used for unknown indication
     Dosage: UNKNOWN
     Route: 065
  12. CALTRATE [Concomitant]
     Active Substance: CALCIUM CARBONATE
     Indication: Product used for unknown indication
     Dosage: UNKNOWN

REACTIONS (9)
  - Sleep disorder [Unknown]
  - Pain [Recovering/Resolving]
  - Muscle strain [Recovering/Resolving]
  - Muscle contusion [Recovering/Resolving]
  - Bone contusion [Recovering/Resolving]
  - Malaise [Unknown]
  - Paraesthesia [Not Recovered/Not Resolved]
  - Paraesthesia oral [Not Recovered/Not Resolved]
  - Fall [Recovered/Resolved]

NARRATIVE: CASE EVENT DATE: 20200101
